FAERS Safety Report 9565502 (Version 1)
Quarter: 2013Q3

REPORT INFORMATION
  Report Type: Spontaneous
  Country: US (occurrence: US)
  Receive Date: 20130930
  Receipt Date: 20130930
  Transmission Date: 20140515
  Serious: No
  Sender: FDA-Public Use
  Company Number: US-PFIZER INC-2013276073

PATIENT
  Age: 53 Year
  Sex: Female
  Weight: 122 kg

DRUGS (11)
  1. ADVIL [Suspect]
     Indication: PAIN IN EXTREMITY
     Dosage: 800 MG, 2X/DAY
     Dates: start: 201309
  2. LYRICA [Suspect]
     Indication: DIABETIC NEUROPATHY
     Dosage: 100 MG, 3X/DAY
     Dates: start: 201306, end: 20130918
  3. TYLENOL [Suspect]
     Indication: PAIN IN EXTREMITY
     Dosage: 1000 MG, 4X/DAY
     Dates: start: 201309
  4. INSULIN [Concomitant]
     Indication: DIABETES MELLITUS
     Dosage: 40MG IN MORNING, 25MG IN AFTERNOON, 35MG IN EVENING, AND AN UNKNOWN DOSE AT NIGHT
  5. LASIX [Concomitant]
     Indication: CARDIAC DISORDER
     Dosage: 60 MG, DAILY
  6. POTASSIUM [Concomitant]
     Indication: CARDIAC DISORDER
     Dosage: 20 MG, DAILY
  7. ALTACE [Concomitant]
     Indication: CARDIAC DISORDER
     Dosage: 2.5 MG, DAILY
  8. COREG [Concomitant]
     Indication: CARDIAC DISORDER
     Dosage: 25 MG, 2X/DAY
  9. PLAQUENIL [Concomitant]
     Indication: SYSTEMIC LUPUS ERYTHEMATOSUS
     Dosage: 400 MG, DAILY
     Dates: start: 2013
  10. COUMADIN [Concomitant]
     Indication: ANTIPHOSPHOLIPID SYNDROME
     Dosage: 15 MG, DAILY
  11. SYNTHROID [Concomitant]
     Dosage: 50 MCG, DAILY

REACTIONS (4)
  - Overdose [Unknown]
  - Drug ineffective [Unknown]
  - Pain in extremity [Not Recovered/Not Resolved]
  - Insomnia [Unknown]
